FAERS Safety Report 24801533 (Version 1)
Quarter: 2025Q1

REPORT INFORMATION
  Report Type: Spontaneous
  Country: US (occurrence: US)
  Receive Date: 20250102
  Receipt Date: 20250102
  Transmission Date: 20250409
  Serious: No
  Sender: PFIZER
  Company Number: US-PFIZER INC-PV202300135024

PATIENT
  Age: 79 Year
  Sex: Female

DRUGS (1)
  1. IBRANCE [Suspect]
     Active Substance: PALBOCICLIB
     Indication: Breast cancer female
     Route: 048

REACTIONS (9)
  - Klebsiella infection [Unknown]
  - Urine abnormality [Unknown]
  - White blood cells urine positive [Unknown]
  - Protein urine present [Unknown]
  - Blood urine present [Unknown]
  - Nitrite urine present [Unknown]
  - Bacterial test positive [Unknown]
  - Culture urine positive [Unknown]
  - Product dose omission in error [Unknown]

NARRATIVE: CASE EVENT DATE: 20230802
